FAERS Safety Report 24665805 (Version 1)
Quarter: 2024Q4

REPORT INFORMATION
  Report Type: Spontaneous
  Country: JP (occurrence: JP)
  Receive Date: 20241126
  Receipt Date: 20241126
  Transmission Date: 20250115
  Serious: Yes (Other)
  Sender: ELI LILLY AND COMPANY
  Company Number: JP-ELI_LILLY_AND_COMPANY-JP202201010677

PATIENT
  Age: 65 Year
  Sex: Male

DRUGS (2)
  1. CYRAMZA [Suspect]
     Active Substance: RAMUCIRUMAB
     Indication: Non-small cell lung cancer stage IV
     Dosage: 10 MG/KG, UNKNOWN
     Route: 041
  2. TARCEVA [Suspect]
     Active Substance: ERLOTINIB HYDROCHLORIDE
     Indication: Non-small cell lung cancer stage IV
     Route: 048

REACTIONS (4)
  - Pneumonitis [Unknown]
  - Diarrhoea [Recovered/Resolved]
  - Hypertension [Unknown]
  - Proteinuria [Recovered/Resolved]
